FAERS Safety Report 4682567-1 (Version None)
Quarter: 2005Q2

REPORT INFORMATION
  Report Type: 
  Country: None (occurrence: None)
  Receive Date: 20050606
  Receipt Date: 20050414
  Transmission Date: 20051028
  Serious: Yes (Hospitalization)
  Sender: FDA-Public Use
  Company Number: CA-JNJFOC-20050403703

PATIENT
  Sex: Female

DRUGS (1)
  1. SPORANOX [Suspect]
     Route: 049

REACTIONS (4)
  - DIABETES MELLITUS [None]
  - DRUG INEFFECTIVE [None]
  - HEPATIC ENZYME INCREASED [None]
  - SYNCOPE [None]
